FAERS Safety Report 7040436-6 (Version None)
Quarter: 2010Q4

REPORT INFORMATION
  Report Type: 
  Country: None (occurrence: None)
  Receive Date: 20101012
  Receipt Date: 20101008
  Transmission Date: 20110411
  Serious: Yes (Life-Threatening)
  Sender: FDA-Public Use
  Company Number: AU-MERCK-1010USA00863

PATIENT
  Age: 84 Year
  Sex: Male
  Weight: 87 kg

DRUGS (6)
  1. VYTORIN [Suspect]
     Route: 048
     Dates: start: 20070215, end: 20100723
  2. AMLODIPINE [Concomitant]
     Route: 065
  3. CLOPIDOGREL BISULFATE [Concomitant]
     Route: 065
  4. COLOXYL WITH SENNA [Concomitant]
     Route: 065
  5. IMDUR [Concomitant]
     Route: 065
  6. METOPROLOL TARTRATE [Concomitant]
     Route: 065

REACTIONS (1)
  - RENAL FAILURE ACUTE [None]
